FAERS Safety Report 7141365-X (Version None)
Quarter: 2010Q4

REPORT INFORMATION
  Report Type: 
  Country: None (occurrence: None)
  Receive Date: 20101203
  Receipt Date: 20101203
  Transmission Date: 20110411
  Serious: Yes (Life-Threatening, Hospitalization)
  Sender: FDA-Public Use
  Company Number: None

PATIENT
  Sex: Female
  Weight: 69.1 kg

DRUGS (1)
  1. ROCEPHIN [Suspect]
     Indication: TOOTH INFECTION
     Dosage: 500MG
     Dates: start: 20101105

REACTIONS (12)
  - ANAPHYLACTIC SHOCK [None]
  - BLOOD PRESSURE ABNORMAL [None]
  - CHEST PAIN [None]
  - CONVULSION [None]
  - DRUG HYPERSENSITIVITY [None]
  - HYPERHIDROSIS [None]
  - LACRIMATION INCREASED [None]
  - LOSS OF CONSCIOUSNESS [None]
  - OCULAR HYPERAEMIA [None]
  - PAIN [None]
  - TREMOR [None]
  - VISION BLURRED [None]
